FAERS Safety Report 6146748-2 (Version None)
Quarter: 2009Q2

REPORT INFORMATION
  Report Type: 
  Country: None (occurrence: None)
  Receive Date: 20090403
  Receipt Date: 20090403
  Transmission Date: 20091009
  Serious: Yes (Hospitalization)
  Sender: FDA-Public Use
  Company Number: None

PATIENT
  Age: 33 Year
  Sex: Female
  Weight: 49 kg

DRUGS (2)
  1. PHENAZOPYRIDINE (PYRIDIUM) [Suspect]
     Indication: PAIN
     Dosage: 200 MG DAILY PO
     Route: 048
     Dates: start: 20080312, end: 20080317
  2. PHENAZOPYRIDINE (PYRIDIUM) [Suspect]
     Indication: URINARY TRACT INFECTION
     Dosage: 200 MG DAILY PO
     Route: 048
     Dates: start: 20080312, end: 20080317

REACTIONS (4)
  - CONTRAINDICATION TO MEDICAL TREATMENT [None]
  - DYSURIA [None]
  - HAEMATURIA [None]
  - POLLAKIURIA [None]
